FAERS Safety Report 14503673 (Version 1)
Quarter: 2018Q1

REPORT INFORMATION
  Report Type: Report from Study
  Country: CL (occurrence: CL)
  Receive Date: 20180208
  Receipt Date: 20180208
  Transmission Date: 20180509
  Serious: Yes (Other)
  Sender: FDA-Public Use
  Company Number: PHHY2018CL018997

PATIENT
  Sex: Female

DRUGS (2)
  1. OMNITROPE [Suspect]
     Active Substance: SOMATROPIN
     Indication: GROWTH HORMONE DEFICIENCY
     Dosage: 3 IU, QD (10MG)
     Route: 058
     Dates: start: 20171016
  2. OMNITROPE [Suspect]
     Active Substance: SOMATROPIN
     Dosage: 3 IU, QD (10MG)
     Route: 058

REACTIONS (3)
  - Panic attack [Recovering/Resolving]
  - Headache [Recovering/Resolving]
  - Psychiatric symptom [Recovering/Resolving]
